FAERS Safety Report 22196543 (Version 10)
Quarter: 2023Q2

REPORT INFORMATION
  Report Type: Spontaneous
  Country: CA (occurrence: CA)
  Receive Date: 20230411
  Receipt Date: 20230626
  Transmission Date: 20230721
  Serious: Yes (Hospitalization, Other)
  Sender: FDA-Public Use
  Company Number: CA-CELLTRION INC.-2023CA003922

PATIENT

DRUGS (6)
  1. INFLECTRA [Suspect]
     Active Substance: INFLIXIMAB-DYYB
     Indication: Neurosarcoidosis
     Dosage: 1 DF, W0 RECEIVED IN HOSPITAL, DOSE UNKNOWN (EVERY 4 WEEK)
     Route: 042
     Dates: start: 20230209, end: 20230209
  2. INFLECTRA [Suspect]
     Active Substance: INFLIXIMAB-DYYB
     Dosage: 320 MG, INDUCTION W2, 6 THEN MAINTENANCE Q4 WEEKS
     Route: 042
     Dates: start: 20230302
  3. INFLECTRA [Suspect]
     Active Substance: INFLIXIMAB-DYYB
     Dosage: 320 MG, INDUCTION W2, 6 THEN MAINTENANCE Q4 WEEKS
     Route: 042
     Dates: start: 20230404
  4. INFLECTRA [Suspect]
     Active Substance: INFLIXIMAB-DYYB
     Dosage: 320 MG, INDUCTION W2, 6 THEN MAINTENANCE Q4 WEEKS
     Route: 042
     Dates: start: 20230503
  5. INFLECTRA [Suspect]
     Active Substance: INFLIXIMAB-DYYB
     Dosage: 320 MG, RECEIVED 6 WEEKS AFTER 03MAY2023 PRESCRIBED TREATMENTS ARE EVERY 4 WEEKS.
     Route: 042
     Dates: start: 20230616
  6. SULFATRIM [Concomitant]
     Active Substance: SULFAMETHOXAZOLE\TRIMETHOPRIM
     Dosage: UNK

REACTIONS (14)
  - Pain in extremity [Recovering/Resolving]
  - Bursitis [Recovering/Resolving]
  - Cataract [Unknown]
  - Influenza [Not Recovered/Not Resolved]
  - Fatigue [Recovering/Resolving]
  - Anxiety [Unknown]
  - Dizziness [Not Recovered/Not Resolved]
  - Asthenia [Recovering/Resolving]
  - Gait disturbance [Unknown]
  - Dyspnoea exertional [Unknown]
  - Decreased appetite [Unknown]
  - Food craving [Not Recovered/Not Resolved]
  - Ocular hyperaemia [Not Recovered/Not Resolved]
  - Off label use [Unknown]

NARRATIVE: CASE EVENT DATE: 20230101
